FAERS Safety Report 22165637 (Version 2)
Quarter: 2023Q2

REPORT INFORMATION
  Report Type: Spontaneous
  Country: RU (occurrence: RU)
  Receive Date: 20230403
  Receipt Date: 20230420
  Transmission Date: 20230722
  Serious: Yes (Life-Threatening, Hospitalization)
  Sender: FDA-Public Use
  Company Number: RU-BEH-2023156914

PATIENT
  Age: 36 Year
  Sex: Female
  Weight: 61 kg

DRUGS (9)
  1. PRIVIGEN [Suspect]
     Active Substance: HUMAN IMMUNOGLOBULIN G
     Indication: Varicose vein
     Dosage: 300 MILLILITER
     Route: 042
     Dates: start: 20221223, end: 20221223
  2. PRIVIGEN [Suspect]
     Active Substance: HUMAN IMMUNOGLOBULIN G
     Dosage: 100 MILLILITER
     Route: 042
     Dates: start: 20230313, end: 20230313
  3. CETIRIZINE HYDROCHLORIDE [Suspect]
     Active Substance: CETIRIZINE HYDROCHLORIDE
     Indication: Premedication
     Dosage: 10 MILLIGRAM
     Dates: start: 20230313, end: 20230313
  4. PREDNISOLONE [Suspect]
     Active Substance: PREDNISOLONE
     Indication: Premedication
     Dosage: 30 MILLIGRAM
     Route: 042
     Dates: start: 20230313, end: 20230313
  5. CETIRIZINE HYDROCHLORIDE [Suspect]
     Active Substance: CETIRIZINE HYDROCHLORIDE
     Dosage: 10 MILLIGRAM
     Route: 048
     Dates: start: 20230306, end: 20230312
  6. ACETYLCYSTEINE [Suspect]
     Active Substance: ACETYLCYSTEINE
     Dosage: 4 DOSAGE FORM (2 DOSAGE FORM PER NOSTRIL), TID
     Route: 045
     Dates: start: 20230301, end: 20230308
  7. MOMETASONE FUROATE MONOHYDRATE [Suspect]
     Active Substance: MOMETASONE FUROATE MONOHYDRATE
     Indication: Rhinitis
     Dosage: 4 DOSAGE FORM (2 DOSAGE FORM PER NOSTRIL), TID
     Route: 045
     Dates: start: 20230301, end: 20230308
  8. AMBROXOL HYDROCHLORIDE [Suspect]
     Active Substance: AMBROXOL HYDROCHLORIDE
     Indication: Rhinitis
     Dosage: 30 MILLIGRAM
     Route: 048
     Dates: start: 20230301, end: 20230311
  9. CARBOCYSTEINE LYSINE [Suspect]
     Active Substance: CARBOCYSTEINE LYSINE
     Indication: Rhinitis
     Dosage: UNK
     Dates: start: 20230301, end: 20230311

REACTIONS (9)
  - Blood pressure decreased [Recovering/Resolving]
  - Pallor [Recovering/Resolving]
  - Nausea [Recovering/Resolving]
  - Dysphagia [Recovering/Resolving]
  - Cough [Recovering/Resolving]
  - Loss of consciousness [Recovering/Resolving]
  - Anaphylactic reaction [Recovering/Resolving]
  - No adverse event [Unknown]
  - Off label use [Unknown]

NARRATIVE: CASE EVENT DATE: 20230313
